FAERS Safety Report 18960128 (Version 3)
Quarter: 2021Q2

REPORT INFORMATION
  Report Type: Spontaneous
  Country: PL (occurrence: PL)
  Receive Date: 20210302
  Receipt Date: 20210401
  Transmission Date: 20210717
  Serious: Yes (Life-Threatening, Hospitalization, Other)
  Sender: FDA-Public Use
  Company Number: NVSC2021PL044863

PATIENT
  Age: 65 Year
  Sex: Female

DRUGS (45)
  1. DOXORUBICIN [Suspect]
     Active Substance: DOXORUBICIN
     Dosage: R?CHOP REGIMEN; DOSE REDUCED
     Route: 065
     Dates: start: 201709, end: 201709
  2. DOXORUBICIN [Suspect]
     Active Substance: DOXORUBICIN
     Dosage: UNK UNK, CYCLIC (UNK, UNK QCY)
     Route: 065
     Dates: start: 20180301
  3. MYCOPHENOLATE MOFETIL. [Suspect]
     Active Substance: MYCOPHENOLATE MOFETIL
     Indication: IMMUNOSUPPRESSANT DRUG THERAPY
     Dosage: UNK
     Route: 065
     Dates: end: 201709
  4. CYCLOPHOSPHAMIDE. [Suspect]
     Active Substance: CYCLOPHOSPHAMIDE
     Dosage: UNK UNK, CYCLIC (UNK, UNK QCY)
     Route: 065
     Dates: start: 20171215, end: 20171216
  5. PREDNISONE. [Suspect]
     Active Substance: PREDNISONE
     Dosage: UNK UNK, CYCLIC (UNK, UNK QCY)
     Route: 065
     Dates: start: 20180301
  6. RITUXIMAB. [Suspect]
     Active Substance: RITUXIMAB
     Dosage: UNK UNK, CYCLIC (UNK, UNK QCY)
     Route: 065
     Dates: start: 20170925, end: 20170926
  7. RITUXIMAB. [Suspect]
     Active Substance: RITUXIMAB
     Dosage: UNK, CYCLIC (UNK, UNK QCY)
     Route: 065
     Dates: start: 20180301
  8. CYCLOPHOSPHAMIDE. [Suspect]
     Active Substance: CYCLOPHOSPHAMIDE
     Dosage: UNK UNK, CYCLIC (UNK, UNK QCY), R?CHOP REGIMEN; REDUCED BY 30 PERCENT
     Route: 065
     Dates: start: 20180123, end: 20180301
  9. PREDNISONE. [Suspect]
     Active Substance: PREDNISONE
     Dosage: UNK UNK, CYCLIC (UNK, UNK QCY), R?CHOP REGIMEN; REDUCED BY 30 PERCENT
     Route: 065
     Dates: start: 20180123, end: 20180301
  10. RITUXIMAB. [Suspect]
     Active Substance: RITUXIMAB
     Dosage: UNK UNK, CYCLIC (UNK, UNK QCY)
     Route: 065
     Dates: start: 20171018, end: 20171019
  11. RITUXIMAB. [Suspect]
     Active Substance: RITUXIMAB
     Dosage: UNK UNK, CYCLIC (UNK, UNK QCY)
     Route: 065
     Dates: start: 20171108, end: 20171109
  12. DOXORUBICIN [Suspect]
     Active Substance: DOXORUBICIN
     Dosage: UNK UNK, CYCLIC (UNK, UNK QCY)
     Route: 065
     Dates: start: 20171108, end: 20171109
  13. DOXORUBICIN [Suspect]
     Active Substance: DOXORUBICIN
     Dosage: UNK UNK, CYCLIC (UNK, UNK QCY)
     Route: 065
     Dates: start: 20171215, end: 20171216
  14. CYCLOPHOSPHAMIDE. [Suspect]
     Active Substance: CYCLOPHOSPHAMIDE
     Dosage: UNK UNK, CYCLIC (UNK, UNK QCY)
     Route: 065
     Dates: start: 20180301
  15. VINCRISTINE SULFATE. [Suspect]
     Active Substance: VINCRISTINE SULFATE
     Indication: DIFFUSE LARGE B-CELL LYMPHOMA STAGE III
     Dosage: UNK UNK, CYCLIC (UNK, UNK QCY)
     Route: 065
     Dates: start: 20170904, end: 20170905
  16. VINCRISTINE SULFATE. [Suspect]
     Active Substance: VINCRISTINE SULFATE
     Dosage: UNK, R?CHOP REGIMEN, DOSE REDUCED
     Route: 065
     Dates: start: 201709, end: 201709
  17. VINCRISTINE SULFATE. [Suspect]
     Active Substance: VINCRISTINE SULFATE
     Dosage: UNK UNK, CYCLIC (UNK, UNK QCY)
     Route: 065
     Dates: start: 20171108, end: 20171109
  18. VINCRISTINE SULFATE. [Suspect]
     Active Substance: VINCRISTINE SULFATE
     Dosage: UNK UNK, CYCLIC (UNK, UNK QCY)
     Route: 065
     Dates: start: 20171215, end: 20171216
  19. DOXORUBICIN [Suspect]
     Active Substance: DOXORUBICIN
     Dosage: UNK UNK, CYCLIC (UNK, UNK QCY)
     Route: 065
     Dates: start: 20171018, end: 20171019
  20. DOXORUBICIN [Suspect]
     Active Substance: DOXORUBICIN
     Dosage: UNK UNK, CYCLIC (UNK, UNK QCY)R?CHOP REGIMEN; REDUCED BY 30 PERCENT
     Route: 065
     Dates: start: 20180123, end: 20180301
  21. VINCRISTINE SULFATE. [Suspect]
     Active Substance: VINCRISTINE SULFATE
     Indication: POST TRANSPLANT LYMPHOPROLIFERATIVE DISORDER
     Dosage: UNK UNK, CYCLIC (UNK, UNK QCY)
     Route: 065
     Dates: start: 20170925, end: 20170926
  22. VINCRISTINE SULFATE. [Suspect]
     Active Substance: VINCRISTINE SULFATE
     Dosage: UNK UNK, CYCLIC (UNK, UNK QCY)
     Route: 065
     Dates: start: 20171018, end: 20171019
  23. VINCRISTINE SULFATE. [Suspect]
     Active Substance: VINCRISTINE SULFATE
     Dosage: UNK UNK, CYCLIC (UNK, UNK QCY)
     Route: 065
     Dates: start: 20180301
  24. PREDNISONE. [Suspect]
     Active Substance: PREDNISONE
     Indication: POST TRANSPLANT LYMPHOPROLIFERATIVE DISORDER
     Dosage: UNK UNK, CYCLIC (UNK, UNK QCY)
     Route: 065
     Dates: start: 20170925, end: 20170926
  25. DOXORUBICIN [Suspect]
     Active Substance: DOXORUBICIN
     Indication: POST TRANSPLANT LYMPHOPROLIFERATIVE DISORDER
     Dosage: UNK, CYCLIC R?CHOP REGIMEN; DOSE REDUCED
     Route: 065
     Dates: start: 201709, end: 201709
  26. DOXORUBICIN [Suspect]
     Active Substance: DOXORUBICIN
     Dosage: UNK UNK, CYCLIC (UNK, UNK QCY)
     Route: 065
     Dates: start: 20170925, end: 20170926
  27. MYCOPHENOLATE MOFETIL. [Suspect]
     Active Substance: MYCOPHENOLATE MOFETIL
     Indication: RENAL TRANSPLANT
     Dosage: UNK
     Route: 065
     Dates: start: 2006, end: 2017
  28. CYCLOPHOSPHAMIDE. [Suspect]
     Active Substance: CYCLOPHOSPHAMIDE
     Dosage: UNK UNK, CYCLIC (UNK, UNK QCY)
     Route: 065
     Dates: start: 20171108, end: 20171109
  29. PREDNISONE. [Suspect]
     Active Substance: PREDNISONE
     Indication: DIFFUSE LARGE B-CELL LYMPHOMA STAGE III
     Dosage: UNK UNK, CYCLIC (UNK, UNK QCY)
     Route: 065
     Dates: start: 20170904, end: 20170905
  30. PREDNISONE. [Suspect]
     Active Substance: PREDNISONE
     Dosage: UNK UNK, CYCLIC (UNK, UNK QCY)
     Route: 065
     Dates: start: 20171018, end: 20171019
  31. RITUXIMAB. [Suspect]
     Active Substance: RITUXIMAB
     Indication: DIFFUSE LARGE B-CELL LYMPHOMA STAGE III
     Dosage: UNK UNK, CYCLIC (UNK, UNK QCY)
     Route: 065
     Dates: start: 20170904, end: 20170905
  32. RITUXIMAB. [Suspect]
     Active Substance: RITUXIMAB
     Indication: POST TRANSPLANT LYMPHOPROLIFERATIVE DISORDER
     Dosage: UNK UNK, CYCLIC R?CHOP REGIMEN
     Route: 065
     Dates: start: 201709, end: 201709
  33. RITUXIMAB. [Suspect]
     Active Substance: RITUXIMAB
     Dosage: UNK UNK, CYCLIC (UNK, UNK QCY)
     Route: 065
     Dates: start: 20171215, end: 20171216
  34. RITUXIMAB. [Suspect]
     Active Substance: RITUXIMAB
     Dosage: R?CHOP REGIMEN; REDUCED BY 30 PERCENT
     Route: 065
     Dates: start: 20180123, end: 20180301
  35. DOXORUBICIN [Suspect]
     Active Substance: DOXORUBICIN
     Indication: DIFFUSE LARGE B-CELL LYMPHOMA STAGE III
     Dosage: UNK UNK, CYCLIC (UNK, UNK QCY)
     Route: 065
     Dates: start: 20170904, end: 20170905
  36. CYCLOSPORINE. [Suspect]
     Active Substance: CYCLOSPORINE
     Indication: IMMUNOSUPPRESSANT DRUG THERAPY
     Dosage: UNK
     Route: 065
     Dates: end: 201801
  37. CYCLOPHOSPHAMIDE. [Suspect]
     Active Substance: CYCLOPHOSPHAMIDE
     Indication: DIFFUSE LARGE B-CELL LYMPHOMA STAGE III
     Dosage: UNK UNK, CYCLIC (UNK, UNK QCY)
     Route: 065
     Dates: start: 20170904, end: 20170905
  38. VINCRISTINE SULFATE. [Suspect]
     Active Substance: VINCRISTINE SULFATE
     Dosage: R?CHOP REGIMEN; REDUCED BY 30%
     Route: 065
     Dates: start: 20180123, end: 20180301
  39. PREDNISONE. [Suspect]
     Active Substance: PREDNISONE
     Dosage: UNK UNK, CYCLIC R?CHOP REGIMEN; DOSE REDUCED
     Route: 065
     Dates: start: 201709, end: 201709
  40. CYCLOSPORINE. [Suspect]
     Active Substance: CYCLOSPORINE
     Indication: RENAL TRANSPLANT
     Dosage: UNK
     Route: 065
     Dates: start: 2006, end: 2018
  41. CYCLOPHOSPHAMIDE. [Suspect]
     Active Substance: CYCLOPHOSPHAMIDE
     Indication: POST TRANSPLANT LYMPHOPROLIFERATIVE DISORDER
     Dosage: UNK UNK, CYCLIC (UNK, UNK QCY)
     Route: 065
     Dates: start: 20170925, end: 20170926
  42. CYCLOPHOSPHAMIDE. [Suspect]
     Active Substance: CYCLOPHOSPHAMIDE
     Dosage: R?CHOP REGIMEN; DOSE REDUCED
     Route: 065
     Dates: start: 201709, end: 201709
  43. CYCLOPHOSPHAMIDE. [Suspect]
     Active Substance: CYCLOPHOSPHAMIDE
     Dosage: UNK UNK, CYCLIC (UNK, UNK QCY)
     Route: 065
     Dates: start: 20171018, end: 20171019
  44. PREDNISONE. [Suspect]
     Active Substance: PREDNISONE
     Dosage: UNK UNK, CYCLIC (UNK, UNK QCY)
     Route: 065
     Dates: start: 20171108, end: 20171109
  45. PREDNISONE. [Suspect]
     Active Substance: PREDNISONE
     Dosage: UNK UNK, CYCLIC (UNK, UNK QCY)
     Route: 065
     Dates: start: 20171215, end: 20171216

REACTIONS (15)
  - Klebsiella infection [Recovered/Resolved]
  - Oedema [Unknown]
  - Urinary tract infection [Recovering/Resolving]
  - Product use in unapproved indication [Unknown]
  - Febrile neutropenia [Recovered/Resolved]
  - Pneumocystis jirovecii infection [Recovered/Resolved]
  - Asthenia [Recovered/Resolved]
  - Atrial fibrillation [Recovered/Resolved]
  - Oedema peripheral [Recovered/Resolved]
  - Pancytopenia [Recovered/Resolved]
  - Staphylococcal infection [Recovered/Resolved]
  - Dysuria [Recovered/Resolved]
  - Neutropenia [Recovered/Resolved]
  - Anaemia [Recovered/Resolved]
  - Respiratory tract infection [Recovering/Resolving]

NARRATIVE: CASE EVENT DATE: 2017
